FAERS Safety Report 8031944-X (Version None)
Quarter: 2012Q1

REPORT INFORMATION
  Report Type: 
  Country: None (occurrence: None)
  Receive Date: 20120109
  Receipt Date: 20111013
  Transmission Date: 20120608
  Serious: No
  Sender: FDA-Public Use
  Company Number: US-ABBOTT-11P-163-0864347-00

PATIENT
  Sex: Female

DRUGS (2)
  1. VICODIN [Suspect]
     Indication: PAIN
     Dosage: 5MG/500MG
  2. VALIUM [Concomitant]
     Indication: PRODUCT USED FOR UNKNOWN INDICATION

REACTIONS (7)
  - NECK PAIN [None]
  - NAUSEA [None]
  - SWELLING [None]
  - HEADACHE [None]
  - BACK PAIN [None]
  - PRURITUS [None]
  - ABDOMINAL PAIN UPPER [None]
